FAERS Safety Report 9077113 (Version 1)
Quarter: 2013Q1

REPORT INFORMATION
  Report Type: Report from Study
  Country: US (occurrence: US)
  Receive Date: 20130129
  Receipt Date: 20130129
  Transmission Date: 20140127
  Serious: No
  Sender: FDA-Public Use
  Company Number: US-ABBOTT-12P-163-0948244-00

PATIENT
  Age: 19 Year
  Sex: Male

DRUGS (7)
  1. HUMIRA 40 MG/0.8 ML PEN [Suspect]
     Indication: CROHN^S DISEASE
     Route: 058
     Dates: start: 20120413
  2. ZOLOFT [Concomitant]
     Indication: ASPERGER^S DISORDER
     Route: 048
  3. STRATTERA [Concomitant]
     Indication: ASPERGER^S DISORDER
     Dosage: DAILY
  4. OMEPRAZOLE [Concomitant]
     Indication: CROHN^S DISEASE
     Dosage: DAILY
     Route: 048
  5. PROBIOTIC [Concomitant]
     Indication: CROHN^S DISEASE
  6. B-12 [Concomitant]
     Indication: CROHN^S DISEASE
     Dosage: DAILY
     Route: 048
  7. MULTIVITAMIN [Concomitant]
     Indication: CROHN^S DISEASE
     Route: 048

REACTIONS (2)
  - Joint stiffness [Not Recovered/Not Resolved]
  - Arthralgia [Not Recovered/Not Resolved]
